FAERS Safety Report 13286749 (Version 2)
Quarter: 2017Q1

REPORT INFORMATION
  Report Type: Spontaneous
  Country: DE (occurrence: DE)
  Receive Date: 20170302
  Receipt Date: 20170309
  Transmission Date: 20170428
  Serious: Yes (Hospitalization, Other)
  Sender: FDA-Public Use
  Company Number: DE-INCYTE CORPORATION-2017IN001417

PATIENT
  Sex: Male

DRUGS (2)
  1. JAKAVI [Suspect]
     Active Substance: RUXOLITINIB
     Indication: PRODUCT USED FOR UNKNOWN INDICATION
     Dosage: UNK, BID
     Route: 065
     Dates: start: 2016
  2. EXJADE [Suspect]
     Active Substance: DEFERASIROX
     Indication: PRODUCT USED FOR UNKNOWN INDICATION
     Dosage: (360 MG AND 5 MG), TID
     Route: 065
     Dates: start: 201612

REACTIONS (13)
  - Flatulence [Unknown]
  - Blister [Unknown]
  - Asthenia [Unknown]
  - Rash [Unknown]
  - Pyrexia [Unknown]
  - Haemoglobin decreased [Unknown]
  - Diarrhoea [Unknown]
  - Fluid retention [Unknown]
  - Infection [Unknown]
  - Herpes virus infection [Unknown]
  - Dyspnoea [Unknown]
  - Abdominal distension [Unknown]
  - Circulatory collapse [Unknown]
